FAERS Safety Report 24199950 (Version 2)
Quarter: 2024Q3

REPORT INFORMATION
  Report Type: Spontaneous
  Country: US (occurrence: US)
  Receive Date: 20240812
  Receipt Date: 20240813
  Transmission Date: 20241017
  Serious: Yes (Hospitalization, Other)
  Sender: PFIZER
  Company Number: US-PFIZER INC-PV202400103050

PATIENT
  Age: 75 Year
  Sex: Male
  Weight: 83.447 kg

DRUGS (2)
  1. VYNDAMAX [Suspect]
     Active Substance: TAFAMIDIS
     Indication: Cardiac amyloidosis
     Dosage: 61 MG, 1X/DAY
     Route: 048
  2. VYNDAMAX [Suspect]
     Active Substance: TAFAMIDIS
     Indication: Cardiac failure

REACTIONS (31)
  - Atrial flutter [Not Recovered/Not Resolved]
  - Dyspnoea [Not Recovered/Not Resolved]
  - Oedema peripheral [Recovering/Resolving]
  - Fatigue [Unknown]
  - Feeling abnormal [Unknown]
  - Cardiac failure congestive [Not Recovered/Not Resolved]
  - Aortic stenosis [Unknown]
  - Tricuspid valve incompetence [Unknown]
  - Dyspnoea exertional [Recovering/Resolving]
  - Pollakiuria [Unknown]
  - Decreased appetite [Not Recovered/Not Resolved]
  - Abdominal distension [Unknown]
  - Constipation [Unknown]
  - Brain natriuretic peptide increased [Unknown]
  - Blood lactate dehydrogenase increased [Unknown]
  - Gamma-glutamyltransferase increased [Unknown]
  - Blood creatinine increased [Unknown]
  - Blood glucose increased [Unknown]
  - Glomerular filtration rate decreased [Unknown]
  - Blood albumin decreased [Unknown]
  - Blood bilirubin increased [Unknown]
  - Aspartate aminotransferase increased [Unknown]
  - Alanine aminotransferase increased [Unknown]
  - Blood albumin decreased [Unknown]
  - Light chain analysis increased [Unknown]
  - Laboratory test abnormal [Unknown]
  - Polyuria [Not Recovered/Not Resolved]
  - Laboratory test abnormal [Unknown]
  - Light chain analysis increased [Unknown]
  - Left ventricular hypertrophy [Unknown]
  - Aortic valve calcification [Unknown]

NARRATIVE: CASE EVENT DATE: 20240507
